FAERS Safety Report 4705713-X (Version None)
Quarter: 2005Q2

REPORT INFORMATION
  Report Type: 
  Country: None (occurrence: None)
  Receive Date: 20050629
  Receipt Date: 20050621
  Transmission Date: 20051028
  Serious: Yes (Hospitalization)
  Sender: FDA-Public Use
  Company Number: 2005040615

PATIENT
  Sex: Female

DRUGS (1)
  1. CLINDAMYCIN HYDROCHLORIDE [Suspect]
     Indication: PERIODONTITIS
     Dosage: 600 MG (300 MG, BID), ORAL
     Route: 048
     Dates: start: 20040920

REACTIONS (3)
  - ANAPHYLACTIC REACTION [None]
  - HYPERTENSION [None]
  - RASH PUSTULAR [None]
